FAERS Safety Report 14892178 (Version 1)
Quarter: 2018Q2

REPORT INFORMATION
  Report Type: Spontaneous
  Country: US (occurrence: US)
  Receive Date: 20180514
  Receipt Date: 20180514
  Transmission Date: 20180711
  Serious: No
  Sender: FDA-Public Use
  Company Number: US-ANIPHARMA-2017-US-011720

PATIENT
  Age: 57 Year
  Sex: Female
  Weight: 58.97 kg

DRUGS (8)
  1. LITHOBID [Suspect]
     Active Substance: LITHIUM CARBONATE
     Indication: MASTOCYTOSIS
     Dosage: 1 PILL ONCE DAILY
     Route: 048
     Dates: start: 2007
  2. ZYRTEC [Concomitant]
     Active Substance: CETIRIZINE HYDROCHLORIDE
  3. ASPIRIN. [Concomitant]
     Active Substance: ASPIRIN
  4. MULTIVITAMIN [Concomitant]
     Active Substance: VITAMINS
  5. B VITAMIN [Concomitant]
  6. IRON [Concomitant]
     Active Substance: IRON
  7. KETOTIFEN [Concomitant]
     Active Substance: KETOTIFEN
  8. XOLAIR [Concomitant]
     Active Substance: OMALIZUMAB

REACTIONS (6)
  - Paraesthesia [Not Recovered/Not Resolved]
  - Pruritus [Not Recovered/Not Resolved]
  - Erythema [Not Recovered/Not Resolved]
  - Feeling hot [Not Recovered/Not Resolved]
  - Burning sensation [Not Recovered/Not Resolved]
  - Pain [Not Recovered/Not Resolved]

NARRATIVE: CASE EVENT DATE: 20170926
